FAERS Safety Report 8914034 (Version 5)
Quarter: 2013Q4

REPORT INFORMATION
  Report Type: Spontaneous
  Country: US (occurrence: US)
  Receive Date: 20121119
  Receipt Date: 20131010
  Transmission Date: 20140711
  Serious: Yes (Other)
  Sender: FDA-Public Use
  Company Number: US-JNJFOC-20121008387

PATIENT
  Age: 19 Year
  Sex: Male
  Weight: 92.99 kg

DRUGS (15)
  1. INVEGA SUSTENNA [Suspect]
     Indication: SCHIZOPHRENIA
     Dosage: RIGHT DELTOID REGION
     Route: 030
     Dates: start: 20120806, end: 20120806
  2. INVEGA SUSTENNA [Suspect]
     Indication: SCHIZOPHRENIA
     Dosage: LEFT DELTOID REGION
     Route: 030
     Dates: start: 20120813, end: 20120813
  3. INVEGA SUSTENNA [Suspect]
     Indication: SCHIZOPHRENIA
     Dosage: LEFT DELTOID REGION
     Route: 030
     Dates: start: 20120905, end: 20120905
  4. INVEGA SUSTENNA [Suspect]
     Indication: SCHIZOPHRENIA
     Dosage: LEFT DELTOID REGION
     Route: 030
     Dates: start: 20120928, end: 20120928
  5. INVEGA SUSTENNA [Suspect]
     Indication: PSYCHOTIC DISORDER
     Dosage: LEFT DELTOID REGION
     Route: 030
     Dates: start: 20120905, end: 20120905
  6. INVEGA SUSTENNA [Suspect]
     Indication: PSYCHOTIC DISORDER
     Dosage: LEFT DELTOID REGION
     Route: 030
     Dates: start: 20120928, end: 20120928
  7. INVEGA SUSTENNA [Suspect]
     Indication: PSYCHOTIC DISORDER
     Dosage: LEFT DELTOID REGION
     Route: 030
     Dates: start: 20120813, end: 20120813
  8. INVEGA SUSTENNA [Suspect]
     Indication: PSYCHOTIC DISORDER
     Dosage: RIGHT DELTOID REGION
     Route: 030
     Dates: start: 20120806, end: 20120806
  9. INVEGA [Concomitant]
     Indication: SCHIZOPHRENIA
     Dosage: BEFORE SLEEP
     Route: 048
     Dates: start: 20120728, end: 20120806
  10. QUETIAPINE [Concomitant]
     Indication: SCHIZOPHRENIA
     Dosage: BEFORE SLEEP
     Route: 065
     Dates: start: 20120917, end: 20130825
  11. LORAZEPAM [Concomitant]
     Indication: RESTLESSNESS
     Dosage: 0.5-1.0 MG EVERT 4 HOURS (AS NECESSARY)
     Route: 065
     Dates: start: 20121001
  12. SEROQUEL [Concomitant]
     Indication: MANIA
     Dosage: 600-800 MG EVERY DAY AT HOURS OF SLEEP
     Route: 065
     Dates: start: 20120917
  13. SEROQUEL [Concomitant]
     Indication: PSYCHOTIC DISORDER
     Dosage: 600-800 MG EVERY DAY AT HOURS OF SLEEP
     Route: 065
     Dates: start: 20120917
  14. DEPAKOTE ER [Concomitant]
     Indication: SCHIZOAFFECTIVE DISORDER
     Route: 065
  15. DEPAKOTE ER [Concomitant]
     Indication: SCHIZOAFFECTIVE DISORDER
     Dosage: EVERY DAY AT HOURS OF SLEEP
     Route: 065
     Dates: start: 20120917, end: 20120928

REACTIONS (5)
  - Exposure to contaminated device [Unknown]
  - Injection site infection [Recovered/Resolved]
  - Injection site hypersensitivity [Recovered/Resolved]
  - Inappropriate schedule of drug administration [Unknown]
  - Injection site nodule [Recovered/Resolved]
